FAERS Safety Report 20823481 (Version 2)
Quarter: 2023Q2

REPORT INFORMATION
  Report Type: Spontaneous
  Country: HR (occurrence: HR)
  Receive Date: 20220513
  Receipt Date: 20230607
  Transmission Date: 20230722
  Serious: Yes (Other)
  Sender: FDA-Public Use
  Company Number: HR-TOLMAR, INC.-22HR033601

PATIENT
  Sex: Male

DRUGS (15)
  1. ELIGARD [Suspect]
     Active Substance: LEUPROLIDE ACETATE
     Indication: Prostate cancer
     Dosage: UNK MILLIGRAM
     Dates: start: 201402
  2. DOCETAXEL [Suspect]
     Active Substance: DOCETAXEL
     Indication: Prostate cancer
     Dosage: UNK
     Dates: start: 201709, end: 201803
  3. DOCETAXEL [Suspect]
     Active Substance: DOCETAXEL
     Dosage: UNK
     Dates: start: 202201, end: 202203
  4. XTANDI [Suspect]
     Active Substance: ENZALUTAMIDE
     Indication: Prostate cancer
     Dosage: 160 MILLIGRAM, QD
     Dates: start: 201807, end: 202201
  5. GLYBURIDE [Concomitant]
     Active Substance: GLYBURIDE
     Indication: Product used for unknown indication
  6. RAMIPRIL [Concomitant]
     Active Substance: RAMIPRIL
     Indication: Product used for unknown indication
  7. ESTRAMUSTINE PHOSPHATE MEGLUMINE [Concomitant]
     Active Substance: ESTRAMUSTINE PHOSPHATE MEGLUMINE
     Indication: Product used for unknown indication
     Dosage: UNK
     Dates: start: 201511, end: 201702
  8. BIXALAN [Concomitant]
     Indication: Product used for unknown indication
     Dosage: 50 MILLIGRAM, QD
     Dates: end: 201707
  9. TRAMADOL [Concomitant]
     Active Substance: TRAMADOL
     Indication: Product used for unknown indication
     Dosage: 100 MILLIGRAM, BID
  10. CALCIUM [Concomitant]
     Active Substance: CALCIUM
     Indication: Product used for unknown indication
     Dosage: 800 MILLIGRAM, QD
  11. D3 VITAMIN [Concomitant]
     Indication: Product used for unknown indication
     Dosage: 4 DROPS/DAY
  12. BONEFOS [Concomitant]
     Active Substance: CLODRONATE DISODIUM
     Indication: Product used for unknown indication
     Dosage: UNK, QD
  13. IBAT [Concomitant]
     Indication: Product used for unknown indication
     Dosage: 50 MILLIGRAM, QD
  14. DEXAMETHASONE [Concomitant]
     Active Substance: DEXAMETHASONE
     Indication: Product used for unknown indication
     Dosage: 0.5 MILLIGRAM, QD
     Dates: start: 202103, end: 202201
  15. PANTOPRAZOLE [Concomitant]
     Active Substance: PANTOPRAZOLE
     Indication: Product used for unknown indication
     Dosage: 40 MILLIGRAM, MORNING

REACTIONS (13)
  - Prostatic specific antigen increased [Unknown]
  - Metastases to bone [Unknown]
  - Prostate cancer [Unknown]
  - Renal neoplasm [Unknown]
  - Asthenia [Unknown]
  - Paraesthesia [Unknown]
  - Nail disorder [Unknown]
  - Arthralgia [Unknown]
  - Sacral pain [Unknown]
  - Spinal pain [Unknown]
  - Insomnia [Unknown]
  - Back pain [Unknown]
  - Fatigue [Unknown]

NARRATIVE: CASE EVENT DATE: 20170404
